FAERS Safety Report 15591029 (Version 1)
Quarter: 2018Q4

REPORT INFORMATION
  Report Type: Spontaneous
  Country: US (occurrence: US)
  Receive Date: 20181107
  Receipt Date: 20181107
  Transmission Date: 20190205
  Serious: Yes (Other)
  Sender: FDA-Public Use
  Company Number: US-BAYER-2018-202412

PATIENT
  Age: 7 Year
  Sex: Male

DRUGS (1)
  1. SORAFENIB (RAF KINASE INHIBITOR) [Suspect]
     Active Substance: SORAFENIB
     Indication: OSTEOSARCOMA METASTATIC
     Dosage: 200 MG, BID
     Route: 048

REACTIONS (11)
  - Skin hypopigmentation [None]
  - Impaired healing [None]
  - Osteosarcoma recurrent [None]
  - Off label use [None]
  - Palmar-plantar erythrodysaesthesia syndrome [None]
  - Product use issue [None]
  - Rash maculo-papular [None]
  - Melanocytic naevus [None]
  - Growth retardation [None]
  - Product use in unapproved indication [None]
  - Groin pain [None]
